FAERS Safety Report 16113588 (Version 2)
Quarter: 2019Q3

REPORT INFORMATION
  Report Type: Spontaneous
  Country: US (occurrence: US)
  Receive Date: 20190325
  Receipt Date: 20190709
  Transmission Date: 20191004
  Serious: Yes (Hospitalization)
  Sender: FDA-Public Use
  Company Number: US-PFIZER INC-2019127120

PATIENT
  Age: 65 Year
  Sex: Female
  Weight: 66 kg

DRUGS (4)
  1. XELJANZ XR [Suspect]
     Active Substance: TOFACITINIB CITRATE
     Indication: OSTEOPOROSIS
     Dosage: 11 MG, 1X/DAY
     Route: 048
     Dates: start: 201708
  2. METHOTREXATE. [Concomitant]
     Active Substance: METHOTREXATE
     Dosage: 10 DF, WEEKLY
  3. XELJANZ XR [Suspect]
     Active Substance: TOFACITINIB CITRATE
     Indication: ARTHRITIS
     Dosage: 11 MG, DAILY
     Route: 048
     Dates: start: 20170821
  4. XELJANZ XR [Suspect]
     Active Substance: TOFACITINIB CITRATE
     Indication: PAIN

REACTIONS (3)
  - Fall [Not Recovered/Not Resolved]
  - Femur fracture [Not Recovered/Not Resolved]
  - Therapeutic product effect incomplete [Unknown]

NARRATIVE: CASE EVENT DATE: 20180618
